FAERS Safety Report 9847410 (Version 5)
Quarter: 2014Q3

REPORT INFORMATION
  Report Type: Spontaneous
  Country: FR (occurrence: FR)
  Receive Date: 20140127
  Receipt Date: 20140826
  Transmission Date: 20150326
  Serious: Yes (Other)
  Sender: FDA-Public Use
  Company Number: FR-AMGEN-FRASP2014003342

PATIENT
  Age: 81 Year
  Sex: Female

DRUGS (4)
  1. KARDEGIC [Concomitant]
     Active Substance: ASPIRIN LYSINE
     Dosage: 75 MG, UNK
  2. NPLATE [Suspect]
     Active Substance: ROMIPLOSTIM
     Indication: IMMUNE THROMBOCYTOPENIC PURPURA
     Dosage: 280 MUG, UNK
     Route: 065
     Dates: start: 2010
  3. SOLUPRED                           /00016201/ [Concomitant]
     Active Substance: PREDNISOLONE
     Dosage: 4TABLETS/DAY FOR 5 DAYS
  4. AUGMENTIN [Concomitant]
     Active Substance: AMOXICILLIN\CLAVULANATE POTASSIUM
     Indication: TOOTH DISORDER
     Dosage: UNK, 10 DAYS

REACTIONS (9)
  - Platelet count abnormal [Unknown]
  - Tooth disorder [Unknown]
  - Haemophilia [Unknown]
  - Alopecia [Unknown]
  - Insomnia [Unknown]
  - Drug effect decreased [Unknown]
  - Muscle spasms [Unknown]
  - Contusion [Unknown]
  - Urinary tract infection [Unknown]

NARRATIVE: CASE EVENT DATE: 201309
